FAERS Safety Report 10103605 (Version 2)
Quarter: 2014Q2

REPORT INFORMATION
  Report Type: Report from Study
  Country: US (occurrence: US)
  Receive Date: 20140424
  Receipt Date: 20140521
  Transmission Date: 20141212
  Serious: Yes (Hospitalization, Other)
  Sender: FDA-Public Use
  Company Number: PHEH2014US008062

PATIENT
  Age: 38 Year
  Sex: Female
  Weight: 55.9 kg

DRUGS (34)
  1. TOBI PODHALER [Suspect]
     Indication: CYSTIC FIBROSIS
     Dosage: 4 DF, BID (28 DAYS ON AND 28 DAYS OFF)
     Route: 055
     Dates: start: 20140102
  2. TOBI PODHALER [Suspect]
     Indication: PSEUDOMONAS INFECTION
     Dosage: 118 MG, BID
     Route: 055
     Dates: start: 20140207, end: 20140220
  3. DUONEB [Concomitant]
     Indication: CYSTIC FIBROSIS
     Dosage: 3 ML, TID
     Route: 055
     Dates: start: 20110614
  4. PULMOZYME [Concomitant]
     Indication: CYSTIC FIBROSIS
     Dosage: 2.5 MG, DAILY
     Route: 055
     Dates: start: 20110614
  5. ADVAIR [Concomitant]
     Indication: CYSTIC FIBROSIS
     Dosage: 1 DF, BID
     Route: 055
  6. NAC [Concomitant]
     Dosage: 1 DF, BID
     Dates: start: 20140320
  7. PROAIR HFA [Concomitant]
     Dosage: 2 DF, PRN (EVERY FOUR HOURS)
     Route: 055
     Dates: start: 20110614
  8. ZENPEP [Concomitant]
     Dosage: 4 CAPSULES WITH MEALS AND 1 TO 2 CAPSULE WITH SNACKS)
     Dates: start: 20131112
  9. CIPRO [Concomitant]
     Dosage: UNK
     Dates: start: 20140422
  10. PRISTIQ [Concomitant]
     Dosage: 1 DF, QD
     Route: 048
  11. DOC-Q-LACE [Concomitant]
     Dosage: 1 DF, BID
     Route: 048
     Dates: start: 20131112
  12. ADVAIR DISKUS [Concomitant]
     Dosage: 1 DF, BID
     Route: 055
     Dates: start: 20110614
  13. HUMALOG [Concomitant]
     Dosage: UNK UKN, (3 UNITS WITH MEAL IF EATING AND CORRECTION 1 UNITS IF BLOOD GLUCOSE GREATER THAN 200 MG/DL
     Route: 065
     Dates: start: 20140320
  14. CULTURELLE [Concomitant]
  15. ZYVOX [Concomitant]
     Dosage: UNK UKN, UNK
     Dates: start: 20140422
  16. LACTULOSE [Concomitant]
     Dosage: 30 ML, TID
     Route: 048
     Dates: start: 20140320
  17. ATIVAN [Concomitant]
     Dosage: 1 DF, TID
     Route: 048
     Dates: start: 20140331, end: 20140410
  18. ATIVAN [Concomitant]
     Dosage: 1 DF, TID
     Route: 048
     Dates: start: 20140414, end: 20140514
  19. AQUADEKS [Concomitant]
     Dosage: 1 DF, BID
     Dates: start: 20130805
  20. KLOR CON [Concomitant]
     Dosage: 20 MEQ, UNK
     Dates: start: 20140413
  21. DELTASONE [Concomitant]
     Dosage: 4 DF, BID
     Route: 048
  22. DELTASONE [Concomitant]
     Dosage: 4 DF, BID (FOR 2 DAYS)
     Route: 048
  23. DELTASONE [Concomitant]
     Dosage: 3 DF, QD
     Route: 048
  24. SEROQUEL [Concomitant]
     Dosage: UNK UKN, (TAKE 2 TABLETS NIGHTLY, 2 TABLETS AT HS)
     Route: 048
     Dates: start: 20131211
  25. DESYREL [Concomitant]
     Dosage: 1 DF, NIGHTLY
     Route: 048
     Dates: start: 20131211
  26. VITAMIIN A [Concomitant]
     Dosage: 1 DF, DAILY
     Route: 048
     Dates: start: 20140102
  27. AMBIEN CR [Concomitant]
     Dosage: 1 DF, PRN
     Route: 048
  28. VENTOLIN HFA [Concomitant]
     Dosage: 2 DF, PRN EVERY FOUR HOURS
     Route: 055
     Dates: start: 20130827
  29. ZANTAC [Concomitant]
     Dosage: 1 DF, PRN
     Route: 048
     Dates: start: 20140121
  30. QUETIAPINE [Concomitant]
     Dosage: 300 MG, BID
     Route: 048
     Dates: start: 20140121
  31. ZOFRAN [Concomitant]
     Indication: NAUSEA
     Dosage: UNK UKN, (TAKE ONE OR TWO TABLETS EVERY FOUR HOURS AS NEEDED)
     Route: 048
     Dates: start: 20140210
  32. DEXILANT [Concomitant]
     Dosage: 1 DF, NIGHTLY
     Route: 048
     Dates: start: 20140121
  33. DEXILANT [Concomitant]
     Dosage: 1 DF, BEFORE BREAKFAST
     Route: 048
  34. GABAPENTIN [Concomitant]
     Dosage: 300 MG, TID
     Route: 048
     Dates: start: 20140121

REACTIONS (4)
  - Pneumonia [Unknown]
  - Intestinal obstruction [Unknown]
  - Bronchitis [Recovering/Resolving]
  - Small intestinal obstruction [Recovered/Resolved]
